FAERS Safety Report 4830154-4 (Version None)
Quarter: 2005Q4

REPORT INFORMATION
  Report Type: 
  Country: None (occurrence: None)
  Receive Date: 20051115
  Receipt Date: 20051115
  Transmission Date: 20060501
  Serious: Yes (Life-Threatening, Hospitalization)
  Sender: FDA-Public Use
  Company Number: None

PATIENT
  Age: 49 Year
  Sex: Female
  Weight: 120 kg

DRUGS (3)
  1. HYDROMORPHONE [Suspect]
     Indication: PAIN
     Dosage: 2 MG IM
     Route: 030
     Dates: start: 20050827
  2. NITROGLYCERIN [Concomitant]
  3. LASIX [Concomitant]

REACTIONS (8)
  - APNOEA [None]
  - CARDIO-RESPIRATORY ARREST [None]
  - CHEST PAIN [None]
  - DEPRESSED LEVEL OF CONSCIOUSNESS [None]
  - EPISTAXIS [None]
  - FEELING HOT [None]
  - VOMITING [None]
  - WRONG DRUG ADMINISTERED [None]
